FAERS Safety Report 17652040 (Version 2)
Quarter: 2020Q3

REPORT INFORMATION
  Report Type: Spontaneous
  Country: US (occurrence: US)
  Receive Date: 20200409
  Receipt Date: 20200702
  Transmission Date: 20201102
  Serious: Yes (Other)
  Sender: FDA-Public Use
  Company Number: US-ADVANZ PHARMA-202004002411

PATIENT

DRUGS (1)
  1. HYDROXYCHLOROQUINE [Suspect]
     Active Substance: HYDROXYCHLOROQUINE
     Indication: RHEUMATOID ARTHRITIS
     Dosage: TABLET
     Route: 065

REACTIONS (4)
  - Eosinophilic myocarditis [Not Recovered/Not Resolved]
  - Drug eruption [Unknown]
  - Eosinophilia [Not Recovered/Not Resolved]
  - Exposure during pregnancy [Unknown]
